FAERS Safety Report 19743752 (Version 1)
Quarter: 2021Q3

REPORT INFORMATION
  Report Type: Spontaneous
  Country: JP (occurrence: JP)
  Receive Date: 20210824
  Receipt Date: 20210824
  Transmission Date: 20211014
  Serious: Yes (Hospitalization, Other)
  Sender: FDA-Public Use
  Company Number: JP-SETONPHARMA-2021SETLIT00021

PATIENT
  Age: 25 Year
  Sex: Male

DRUGS (5)
  1. TOFACITINIB [Suspect]
     Active Substance: TOFACITINIB
     Indication: COLITIS ULCERATIVE
     Dosage: 20 MG PER DAY
     Route: 065
  2. PREDNISOLONE. [Suspect]
     Active Substance: PREDNISOLONE
     Indication: COLITIS ULCERATIVE
     Dosage: 5?10 MG/DAY FOR 10 YEARS
     Route: 065
  3. GANCICLOVIR. [Interacting]
     Active Substance: GANCICLOVIR
     Indication: CYTOMEGALOVIRUS COLITIS
     Route: 065
  4. MESALAMINE. [Concomitant]
     Active Substance: MESALAMINE
     Indication: COLITIS ULCERATIVE
     Route: 065
  5. MEROPENEM. [Interacting]
     Active Substance: MEROPENEM
     Indication: LUNG ABSCESS
     Route: 065

REACTIONS (13)
  - Cytomegalovirus colitis [Recovering/Resolving]
  - Colitis ulcerative [Recovering/Resolving]
  - Large intestine infection [Recovering/Resolving]
  - Large intestinal ulcer [Recovering/Resolving]
  - Colitis [Recovering/Resolving]
  - Cystic lung disease [Recovering/Resolving]
  - Pyrexia [Recovering/Resolving]
  - Lung abscess [Recovering/Resolving]
  - Drug dependence [Recovering/Resolving]
  - Erythema [Recovering/Resolving]
  - Chest pain [Recovering/Resolving]
  - Mucosal inflammation [Recovering/Resolving]
  - Emphysema [Recovering/Resolving]
